FAERS Safety Report 22051767 (Version 2)
Quarter: 2023Q2

REPORT INFORMATION
  Report Type: Spontaneous
  Country: US (occurrence: US)
  Receive Date: 20230302
  Receipt Date: 20230425
  Transmission Date: 20230722
  Serious: Yes (Other)
  Sender: FDA-Public Use
  Company Number: US-BRISTOL-MYERS SQUIBB COMPANY-2023-030679

PATIENT
  Age: 47 Year
  Sex: Female

DRUGS (1)
  1. SOTYKTU [Suspect]
     Active Substance: DEUCRAVACITINIB
     Indication: Psoriasis
     Dosage: QD (EVERYDAY)
     Route: 048
     Dates: start: 202212, end: 202212

REACTIONS (4)
  - Fatigue [Recovering/Resolving]
  - Chromaturia [Recovering/Resolving]
  - Rash [Unknown]
  - Myopathy [Recovering/Resolving]
